FAERS Safety Report 19877601 (Version 2)
Quarter: 2021Q3

REPORT INFORMATION
  Report Type: Spontaneous
  Country: IT (occurrence: IT)
  Receive Date: 20210924
  Receipt Date: 20210929
  Transmission Date: 20211014
  Serious: Yes (Disabling, Other)
  Sender: FDA-Public Use
  Company Number: IT-MERZ PHARMACEUTICALS GMBH-21-03397

PATIENT
  Age: 44 Year
  Sex: Female
  Weight: 59 kg

DRUGS (6)
  1. RADIESSE [Concomitant]
     Active Substance: TRIBASIC CALCIUM PHOSPHATE
     Dates: start: 20180515, end: 20180515
  2. RADIESSE [Concomitant]
     Active Substance: TRIBASIC CALCIUM PHOSPHATE
     Dates: start: 20170126, end: 20170126
  3. RADIESSE [Concomitant]
     Active Substance: TRIBASIC CALCIUM PHOSPHATE
     Indication: SKIN COSMETIC PROCEDURE
     Dates: start: 20180705, end: 20180705
  4. BOCOUTURE [Suspect]
     Active Substance: BOTULINUM TOXIN TYPE A
     Indication: SKIN COSMETIC PROCEDURE
     Dates: start: 20170126, end: 20170126
  5. BOCOUTURE [Suspect]
     Active Substance: BOTULINUM TOXIN TYPE A
     Dates: start: 20180515, end: 20180515
  6. BOCOUTURE [Suspect]
     Active Substance: BOTULINUM TOXIN TYPE A
     Indication: SKIN COSMETIC PROCEDURE
     Dates: start: 20180705, end: 20180705

REACTIONS (9)
  - Injection site fibrosis [Unknown]
  - Anxiety disorder [Unknown]
  - Depression [Unknown]
  - Injection site cyst [Unknown]
  - Injection site deformation [Unknown]
  - Headache [Unknown]
  - Injection site inflammation [Not Recovered/Not Resolved]
  - Off label use [Unknown]
  - Trigeminal neuralgia [Not Recovered/Not Resolved]

NARRATIVE: CASE EVENT DATE: 20180705
